FAERS Safety Report 7224206-1 (Version None)
Quarter: 2011Q1

REPORT INFORMATION
  Report Type: 
  Country: None (occurrence: None)
  Receive Date: 20110106
  Receipt Date: 20110106
  Transmission Date: 20110831
  Serious: Yes (Other)
  Sender: FDA-Public Use
  Company Number: None

PATIENT
  Age: 45 Year
  Sex: Male
  Weight: 83.9154 kg

DRUGS (1)
  1. ROLAIDS CHEWABLE TAB [Suspect]
     Dosage: 2 DAILY PO
     Route: 048
     Dates: start: 20101129, end: 20101211

REACTIONS (3)
  - OESOPHAGEAL DISORDER [None]
  - ILL-DEFINED DISORDER [None]
  - OROPHARYNGEAL PAIN [None]
